FAERS Safety Report 6874558-7 (Version None)
Quarter: 2010Q3

REPORT INFORMATION
  Report Type: 
  Country: None (occurrence: None)
  Receive Date: 20100722
  Receipt Date: 20100712
  Transmission Date: 20110219
  Serious: Yes (Life-Threatening, Other)
  Sender: FDA-Public Use
  Company Number: 20108926

PATIENT
  Age: 17 Year
  Sex: Male

DRUGS (2)
  1. BACLOFEN [Suspect]
     Indication: MUSCLE SPASTICITY
     Dosage: 240 MCG, DAILY, INTRATHECAL
     Route: 037
  2. LAMICTAL [Concomitant]

REACTIONS (7)
  - CONDITION AGGRAVATED [None]
  - CONVULSION [None]
  - DISSEMINATED INTRAVASCULAR COAGULATION [None]
  - MULTI-ORGAN FAILURE [None]
  - MUSCLE SPASTICITY [None]
  - PAIN [None]
  - PANCREATITIS ACUTE [None]
